FAERS Safety Report 19734459 (Version 3)
Quarter: 2021Q3

REPORT INFORMATION
  Report Type: Spontaneous
  Country: CN (occurrence: CN)
  Receive Date: 20210824
  Receipt Date: 20210928
  Transmission Date: 20211014
  Serious: Yes (Hospitalization, Congenital Anomaly, Other)
  Sender: FDA-Public Use
  Company Number: CN-UCBSA-2021039379

PATIENT
  Age: 0 Year
  Sex: Female
  Weight: 1.7 kg

DRUGS (1)
  1. CIMZIA [Suspect]
     Active Substance: CERTOLIZUMAB PEGOL
     Indication: ANKYLOSING SPONDYLITIS
     Dosage: 200 MILLIGRAM, EV 2 WEEKS(QOW)
     Route: 064
     Dates: start: 20210115, end: 202103

REACTIONS (5)
  - Premature baby [Unknown]
  - Anaemia [Not Recovered/Not Resolved]
  - Maternal exposure during pregnancy [Unknown]
  - Atrial septal defect [Not Recovered/Not Resolved]
  - Low birth weight baby [Unknown]

NARRATIVE: CASE EVENT DATE: 2021
